FAERS Safety Report 24062798 (Version 2)
Quarter: 2024Q3

REPORT INFORMATION
  Report Type: Spontaneous
  Country: US (occurrence: US)
  Receive Date: 20240709
  Receipt Date: 20240802
  Transmission Date: 20241017
  Serious: Yes (Hospitalization)
  Sender: UROGEN PHARMA
  Company Number: US-UROGEN PHARMA LTD.-2024-UGN-000091

PATIENT

DRUGS (6)
  1. JELMYTO [Suspect]
     Active Substance: MITOMYCIN
     Indication: Transitional cell cancer of the renal pelvis and ureter
     Dosage: INSTILLATION, ONCE A WEEK
     Route: 065
     Dates: start: 20240508, end: 20240508
  2. JELMYTO [Suspect]
     Active Substance: MITOMYCIN
     Dosage: INSTILLATION, ONCE A WEEK
     Route: 065
     Dates: start: 20240515, end: 20240515
  3. JELMYTO [Suspect]
     Active Substance: MITOMYCIN
     Dosage: INSTILLATION, ONCE A WEEK
     Route: 065
     Dates: start: 20240522, end: 20240522
  4. JELMYTO [Suspect]
     Active Substance: MITOMYCIN
     Dosage: INSTILLATION, ONCE A WEEK
     Route: 065
     Dates: start: 20240529, end: 20240529
  5. LORAZEPAM [Concomitant]
     Active Substance: LORAZEPAM
     Indication: Product used for unknown indication
     Dosage: UNK
     Route: 065
  6. MULTIVITAMINS (Unspecified) [Concomitant]
     Dosage: UNK
     Route: 065

REACTIONS (10)
  - Pain [Recovering/Resolving]
  - Tenderness [Recovering/Resolving]
  - Abdominal distension [Recovering/Resolving]
  - Respiration abnormal [Recovering/Resolving]
  - Fatigue [Recovering/Resolving]
  - Vomiting [Recovering/Resolving]
  - Candida infection [Recovering/Resolving]
  - Ageusia [Recovering/Resolving]
  - Dizziness [Recovering/Resolving]
  - Weight decreased [Recovering/Resolving]

NARRATIVE: CASE EVENT DATE: 20240101
